FAERS Safety Report 23789459 (Version 1)
Quarter: 2024Q2

REPORT INFORMATION
  Report Type: Spontaneous
  Country: US (occurrence: None)
  Receive Date: 20240425
  Receipt Date: 20240425
  Transmission Date: 20240716
  Serious: No
  Sender: FDA-Public Use
  Company Number: None

PATIENT
  Age: 44 Year
  Sex: Male
  Weight: 92.7 kg

DRUGS (2)
  1. LENVIMA [Suspect]
     Active Substance: LENVATINIB
     Dosage: 12 MG DAILY ORAL
     Route: 048
     Dates: start: 20240326
  2. LENVIMA [Concomitant]
     Active Substance: LENVATINIB
     Dates: start: 20240326

REACTIONS (3)
  - Burning sensation mucosal [None]
  - Contusion [None]
  - Contusion [None]

NARRATIVE: CASE EVENT DATE: 20240425
